FAERS Safety Report 4885378-7 (Version None)
Quarter: 2005Q4

REPORT INFORMATION
  Report Type: 
  Country: None (occurrence: None)
  Receive Date: 20051222
  Receipt Date: 20050303
  Transmission Date: 20060501
  Serious: No
  Sender: FDA-Public Use
  Company Number: 200502451

PATIENT
  Age: 59 Year
  Sex: Female

DRUGS (2)
  1. ELESTAT [Suspect]
     Dates: start: 20050210
  2. PREVACID [Suspect]
     Indication: GASTROOESOPHAGEAL REFLUX DISEASE
     Dosage: 15 MG BID PO
     Route: 048

REACTIONS (2)
  - RASH ERYTHEMATOUS [None]
  - RASH PRURITIC [None]
